FAERS Safety Report 23556541 (Version 1)
Quarter: 2024Q1

REPORT INFORMATION
  Report Type: Spontaneous
  Country: US (occurrence: US)
  Receive Date: 20240223
  Receipt Date: 20240223
  Transmission Date: 20240410
  Serious: No
  Sender: FDA-Public Use
  Company Number: US-GE HEALTHCARE-2024CSU001603

PATIENT
  Age: 67 Year

DRUGS (13)
  1. DATSCAN [Suspect]
     Active Substance: IODINE\IOFLUPANE I-123
     Indication: Single photon emission computerised tomogram
     Dosage: 122.1 MBQ, TOTAL
     Route: 042
     Dates: start: 20240216, end: 20240216
  2. IOSAT [Concomitant]
     Active Substance: POTASSIUM IODIDE
     Dosage: 130 MG, TOTAL
     Route: 048
     Dates: start: 20240216, end: 20240216
  3. SALINE [Concomitant]
     Active Substance: SODIUM CHLORIDE
     Indication: Catheter management
     Dosage: 10 ML, TOTAL
     Route: 042
     Dates: start: 20240216, end: 20240216
  4. OTEZLA [Concomitant]
     Active Substance: APREMILAST
     Dosage: 30 MG
  5. CARBIDOPA LEVODOPA [Concomitant]
     Active Substance: CARBIDOPA\LEVODOPA
     Dosage: 25-100 MG
  6. HYDROCHLOROTHIAZIDE\LOSARTAN [Concomitant]
     Active Substance: HYDROCHLOROTHIAZIDE\LOSARTAN
     Dosage: 100-25 MG
  7. ROSUVASTATIN [Concomitant]
     Active Substance: ROSUVASTATIN
     Dosage: 5 MG
  8. ASPIRIN [Concomitant]
     Active Substance: ASPIRIN
     Dosage: 81 MG
  9. DRISDOL [Concomitant]
     Active Substance: ERGOCALCIFEROL
     Dosage: 1250 MCG
  10. TRAMADOL [Concomitant]
     Active Substance: TRAMADOL\TRAMADOL HYDROCHLORIDE
     Dosage: 50 MG
  11. APPLE CIDER VINEGAR [Concomitant]
     Active Substance: APPLE CIDER VINEGAR
     Dosage: 500 MG
  12. MINERALS\VITAMINS [Concomitant]
     Active Substance: MINERALS\VITAMINS
     Dosage: UNK
  13. HERBALS\TURMERIC [Concomitant]
     Active Substance: HERBALS\TURMERIC
     Dosage: COMPLEX 500 MG

REACTIONS (2)
  - Drug ineffective [Recovered/Resolved]
  - No adverse event [Recovered/Resolved]

NARRATIVE: CASE EVENT DATE: 20240216
